FAERS Safety Report 23771535 (Version 3)
Quarter: 2024Q2

REPORT INFORMATION
  Report Type: Spontaneous
  Country: JP (occurrence: JP)
  Receive Date: 20240423
  Receipt Date: 20240604
  Transmission Date: 20240716
  Serious: Yes (Other)
  Sender: FDA-Public Use
  Company Number: JP-CHUGAI-2023027346

PATIENT
  Age: 76 Year
  Sex: Male
  Weight: 37 kg

DRUGS (3)
  1. TECENTRIQ [Suspect]
     Active Substance: ATEZOLIZUMAB
     Indication: Non-small cell lung cancer
     Dosage: 1200 UNK, ONCE/3WEEKS
     Route: 065
     Dates: start: 20230609, end: 20230906
  2. UMECLIDINIUM BROMIDE\VILANTEROL TRIFENATATE [Concomitant]
     Active Substance: UMECLIDINIUM BROMIDE\VILANTEROL TRIFENATATE
     Dosage: UNK
     Dates: start: 20221122
  3. AMLODIPINE BESYLATE\TELMISARTAN [Concomitant]
     Active Substance: AMLODIPINE BESYLATE\TELMISARTAN
     Dosage: UNK

REACTIONS (7)
  - Cardiomyopathy [Unknown]
  - Skin fissures [Recovered/Resolved]
  - Hyperuricaemia [Recovered/Resolved]
  - Renal impairment [Not Recovered/Not Resolved]
  - Hypothyroidism [Recovering/Resolving]
  - Eczema [Recovered/Resolved]
  - Fatigue [Unknown]

NARRATIVE: CASE EVENT DATE: 20230630
